FAERS Safety Report 8491298-1 (Version None)
Quarter: 2012Q3

REPORT INFORMATION
  Report Type: 
  Country: None (occurrence: None)
  Receive Date: 20120706
  Receipt Date: 20120628
  Transmission Date: 20120928
  Serious: Yes (Other)
  Sender: FDA-Public Use
  Company Number: JP-ASTELLAS-2012JP006081

PATIENT
  Age: 68 Year
  Sex: Male

DRUGS (6)
  1. SITAGLIPTIN PHOSPHATE [Concomitant]
     Dosage: UNK
     Route: 048
  2. AMARYL [Concomitant]
     Dosage: UNK
     Route: 048
  3. MIRABEGRON [Suspect]
     Indication: HYPERTONIC BLADDER
     Dosage: 50 MG, UNKNOWN/D
     Route: 048
     Dates: start: 20120601, end: 20120627
  4. CYMBALTA [Suspect]
     Dosage: UNK
     Route: 048
     Dates: start: 20120625
  5. BASEN [Concomitant]
     Dosage: UNK
     Route: 048
  6. ACTOS [Concomitant]
     Dosage: UNK
     Route: 048

REACTIONS (1)
  - HYPOGLYCAEMIA [None]
